FAERS Safety Report 8341823-6 (Version None)
Quarter: 2012Q2

REPORT INFORMATION
  Report Type: 
  Country: None (occurrence: None)
  Receive Date: 20120507
  Receipt Date: 20120426
  Transmission Date: 20120825
  Serious: Yes (Other)
  Sender: FDA-Public Use
  Company Number: US-ACTELION-A-NJ2012-63237

PATIENT

DRUGS (1)
  1. TRACLEER [Suspect]
     Indication: PULMONARY ARTERIAL HYPERTENSION
     Dosage: UNK
     Route: 048
     Dates: start: 20110203

REACTIONS (4)
  - THERAPEUTIC PROCEDURE [None]
  - SYNCOPE [None]
  - HEART VALVE INCOMPETENCE [None]
  - CARDIAC DISORDER [None]
